FAERS Safety Report 8731725 (Version 2)
Quarter: 2012Q4

REPORT INFORMATION
  Report Type: 
  Country: US (occurrence: US)
  Receive Date: 20120820
  Receipt Date: 20120919
  Transmission Date: 20130627
  Serious: Yes (Death)
  Sender: FDA-Public Use
  Company Number: PHEH2012US016034

PATIENT
  Age: 76 Year
  Sex: Male
  Weight: 65 kg

DRUGS (2)
  1. EXJADE [Suspect]
     Indication: HAEMOCHROMATOSIS
     Dosage: 1500 mg, QD
     Route: 048
     Dates: start: 20111228
  2. EXJADE [Suspect]
     Indication: IRON OVERLOAD

REACTIONS (1)
  - Sudden cardiac death [Fatal]
